FAERS Safety Report 5202073-5 (Version None)
Quarter: 2007Q1

REPORT INFORMATION
  Report Type: 
  Country: None (occurrence: None)
  Receive Date: 20070103
  Receipt Date: 20061221
  Transmission Date: 20070707
  Serious: Yes (Life-Threatening, Hospitalization, Other)
  Sender: FDA-Public Use
  Company Number: HQWYE868112DEC06

PATIENT
  Age: 41 Year
  Sex: Female

DRUGS (1)
  1. TIGECYCLINE (TIGECYCLINE, INJECTION) LOT NO: 2006P1019 [Suspect]
     Indication: ABDOMINAL INFECTION
     Dosage: 100 MG LOADING DOSE, THEN 50 MG EVERY 12 HOURS INTRAVENOUS
     Route: 042
     Dates: start: 20061120, end: 20061204

REACTIONS (8)
  - ACTIVATED PARTIAL THROMBOPLASTIN TIME PROLONGED [None]
  - DEEP VEIN THROMBOSIS [None]
  - DUODENAL ULCER HAEMORRHAGE [None]
  - HAEMATOCRIT DECREASED [None]
  - HAEMOGLOBIN DECREASED [None]
  - MELAENA [None]
  - PROTHROMBIN TIME PROLONGED [None]
  - SHOCK [None]
